FAERS Safety Report 13202861 (Version 2)
Quarter: 2017Q1

REPORT INFORMATION
  Report Type: Report from Study
  Country: US (occurrence: US)
  Receive Date: 20170209
  Receipt Date: 20170304
  Transmission Date: 20170428
  Serious: Yes (Hospitalization, Other)
  Sender: FDA-Public Use
  Company Number: US-BRISTOL-MYERS SQUIBB COMPANY-BMS-2017-009466

PATIENT
  Age: 61 Year
  Sex: Female
  Weight: 110.2 kg

DRUGS (5)
  1. LEUCOVORIN CALCIUM. [Suspect]
     Active Substance: LEUCOVORIN CALCIUM
     Indication: PANCREATIC CARCINOMA
     Dosage: 400 MG/M2, Q2WK
     Route: 042
     Dates: start: 20170117, end: 20170216
  2. DASATINIB [Suspect]
     Active Substance: DASATINIB
     Indication: PANCREATIC CARCINOMA
     Dosage: 150 MG, QD
     Route: 048
     Dates: start: 20170117, end: 20170216
  3. OXALIPLATIN. [Suspect]
     Active Substance: OXALIPLATIN
     Indication: PANCREATIC CARCINOMA
     Dosage: 400 MG/M2, Q2WK
     Route: 042
     Dates: start: 20170117, end: 20170216
  4. FLUOROURACIL. [Suspect]
     Active Substance: FLUOROURACIL
     Indication: PANCREATIC CARCINOMA
     Dosage: 400 MG/M2, UNK
     Route: 040
     Dates: start: 20170117, end: 20170119
  5. FLUOROURACIL. [Suspect]
     Active Substance: FLUOROURACIL
     Indication: PRODUCT USED FOR UNKNOWN INDICATION
     Dosage: 2400 MG/M2, UNK
     Route: 065

REACTIONS (7)
  - Dizziness [Unknown]
  - Mucosal inflammation [Unknown]
  - Haematemesis [Unknown]
  - Oesophagitis [Unknown]
  - Diarrhoea [Unknown]
  - Nausea [Unknown]
  - Vomiting [Unknown]

NARRATIVE: CASE EVENT DATE: 20170122
